FAERS Safety Report 6064740-3 (Version None)
Quarter: 2009Q1

REPORT INFORMATION
  Report Type: 
  Country: None (occurrence: None)
  Receive Date: 20090204
  Receipt Date: 20081017
  Transmission Date: 20090719
  Serious: No
  Sender: FDA-Public Use
  Company Number: A0747274A

PATIENT
  Age: 73 Year
  Sex: Female

DRUGS (5)
  1. ARIXTRA [Suspect]
     Dosage: 10MG PER DAY
     Route: 058
     Dates: start: 20080523, end: 20080818
  2. SYNTHROID [Concomitant]
  3. AVAPRO [Concomitant]
  4. SPIRIVA [Concomitant]
  5. IPRATROPIUM BROMIDE [Concomitant]

REACTIONS (5)
  - BALANCE DISORDER [None]
  - CONTUSION [None]
  - DIPLOPIA [None]
  - DIZZINESS [None]
  - HAEMATOMA [None]
